FAERS Safety Report 6200212-0 (Version None)
Quarter: 2009Q2

REPORT INFORMATION
  Report Type: 
  Country: None (occurrence: None)
  Receive Date: 20090522
  Receipt Date: 20090512
  Transmission Date: 20091009
  Serious: Yes (Other)
  Sender: FDA-Public Use
  Company Number: CA-JNJFOC-20090502485

PATIENT
  Age: 3 Decade
  Sex: Female

DRUGS (6)
  1. PREZISTA [Suspect]
     Indication: HIV INFECTION
  2. LEXIVA [Suspect]
     Indication: HIV INFECTION
  3. NORVIR [Suspect]
     Indication: HIV INFECTION
  4. APTIVUS [Suspect]
     Indication: HIV INFECTION
  5. ZERIT [Suspect]
     Indication: HIV INFECTION
  6. ZIAGEN [Suspect]
     Indication: HIV INFECTION

REACTIONS (8)
  - DEPRESSION [None]
  - DIARRHOEA [None]
  - FATIGUE [None]
  - HEADACHE [None]
  - LIVER DISORDER [None]
  - NAUSEA [None]
  - NIGHTMARE [None]
  - RASH [None]
